FAERS Safety Report 6820777-5 (Version None)
Quarter: 2010Q3

REPORT INFORMATION
  Report Type: 
  Country: None (occurrence: None)
  Receive Date: 20100707
  Receipt Date: 20070516
  Transmission Date: 20110219
  Serious: Yes (Other)
  Sender: FDA-Public Use
  Company Number: US-PFIZER INC-2007039812

PATIENT

DRUGS (2)
  1. SERTRALINE [Suspect]
     Indication: PREMENSTRUAL SYNDROME
  2. ZOLOFT [Concomitant]

REACTIONS (4)
  - AGITATION [None]
  - ANGER [None]
  - DEPRESSION [None]
  - FEELING ABNORMAL [None]
